FAERS Safety Report 9033224 (Version 1)
Quarter: 2013Q1

REPORT INFORMATION
  Report Type: Spontaneous
  Country: CA (occurrence: CA)
  Receive Date: 20130128
  Receipt Date: 20130128
  Transmission Date: 20140127
  Serious: Yes (Hospitalization)
  Sender: FDA-Public Use
  Company Number: CA-BAXTER-2013BAX000287

PATIENT
  Sex: Female

DRUGS (1)
  1. DIANEAL PD4 SOLUTION WITH 1.5% DEXTROSE AND 2.5 MEQ/L CALCIUM [Suspect]
     Indication: PERITONEAL DIALYSIS
     Route: 033

REACTIONS (8)
  - Pyrexia [Unknown]
  - Pneumonia [Unknown]
  - Cardiac failure congestive [Unknown]
  - Acute myocardial infarction [Unknown]
  - Pleural effusion [Unknown]
  - Melaena [Unknown]
  - Haemodynamic instability [Unknown]
  - Duodenal ulcer haemorrhage [Unknown]
